FAERS Safety Report 24531697 (Version 1)
Quarter: 2024Q4

REPORT INFORMATION
  Report Type: Spontaneous
  Country: GB (occurrence: GB)
  Receive Date: 20241022
  Receipt Date: 20241022
  Transmission Date: 20250114
  Serious: Yes (Death, Life-Threatening, Hospitalization, Other)
  Sender: JUBILANT
  Company Number: GB-MHRA-TPP28910607C15399775YC1705421527034

PATIENT
  Age: 53 Year
  Sex: Female
  Weight: 76 kg

DRUGS (13)
  1. DONEPEZIL HYDROCHLORIDE [Suspect]
     Active Substance: DONEPEZIL HYDROCHLORIDE
     Indication: Ill-defined disorder
     Dosage: 5 MG, ORODISPERSIBLE TABLET
     Dates: start: 20240116
  2. MINERAL OIL\PARAFFIN [Concomitant]
     Active Substance: MINERAL OIL\PARAFFIN
     Indication: Ill-defined disorder
     Dosage: TO BE APPLIED AS A MOISTURISER OR SOAP SUBSTITUTE  TO THE AFFECTED AREA(S) OF THE SKIN AS REQUIRED
     Dates: start: 20231222
  3. FUROSEMIDE [Concomitant]
     Active Substance: FUROSEMIDE
     Indication: Ill-defined disorder
     Dosage: 1 DOSAGE FORM, ONCE PER DAY, IN THE MORNING TO REMOVE EXCESS FLUID
     Dates: start: 20231117, end: 20231215
  4. APIXABAN [Concomitant]
     Active Substance: APIXABAN
     Indication: Ill-defined disorder
     Dosage: 2 DOSAGE FORM, 2 TIMES PER DAY
     Dates: start: 20231222
  5. DERMOL [BENZALKONIUM CHLORIDE;CHLORHEXIDINE HYDROCHLORIDE;ISOPROPYL MY [Concomitant]
     Indication: Ill-defined disorder
     Dosage: TO BE APPLIED LIBERALLY TO  DRY SKIN OR USED AS...
     Dates: start: 20240112
  6. MEMANTINE [Concomitant]
     Active Substance: MEMANTINE
     Indication: Memory impairment
     Dosage: 1 DOSAGE FORM, ONCE PER DAY FOR MEMORY
     Dates: start: 20230329
  7. VENLAFAXINE [Concomitant]
     Active Substance: VENLAFAXINE HYDROCHLORIDE
     Indication: Ill-defined disorder
     Dosage: 1 DOSAGE FORM, ONCE PER DAY,  IN THE MORNING WITH FOOD
     Dates: start: 20230329
  8. LEVOTHYROXINE [Concomitant]
     Active Substance: LEVOTHYROXINE
     Indication: Ill-defined disorder
     Dosage: 1 DOSAGE FORM, ONCE PER DAY IN THE MORNING
     Dates: start: 20230329
  9. GALANTAMINE [Concomitant]
     Active Substance: GALANTAMINE
     Indication: Ill-defined disorder
     Dosage: 1 DOSAGE FORM, ONCE PER DAY, IN THE MORNING
     Dates: start: 20230329
  10. POLYETHYLENE GLYCOL 3350\POTASSIUM CHLORIDE\SODIUM BICARBONATE\SODIUM [Concomitant]
     Active Substance: POLYETHYLENE GLYCOL 3350\POTASSIUM CHLORIDE\SODIUM BICARBONATE\SODIUM CHLORIDE
     Indication: Ill-defined disorder
     Dosage: 1 -2 SACHETS DAILY
     Dates: start: 20230329
  11. ATORVASTATIN [Concomitant]
     Active Substance: ATORVASTATIN
     Indication: Blood cholesterol decreased
     Dosage: 1 DOSAGE FORM, ONCE PER DAY TO LOWER CHOLESTEROL
     Dates: start: 20230821
  12. LEVETIRACETAM [Concomitant]
     Active Substance: LEVETIRACETAM
     Indication: Ill-defined disorder
     Dosage: 1 DOSAGE FORM, 2 TIMES PER DAY
     Dates: start: 20230910
  13. RISPERIDONE [Concomitant]
     Active Substance: RISPERIDONE
     Indication: Ill-defined disorder
     Dosage: 1 DOSAGE FORM, 2 TIMES PER DAY
     Dates: start: 20230920, end: 20231026

REACTIONS (1)
  - Death [Fatal]

NARRATIVE: CASE EVENT DATE: 20240116
